FAERS Safety Report 6914076-0 (Version None)
Quarter: 2010Q3

REPORT INFORMATION
  Report Type: 
  Country: None (occurrence: None)
  Receive Date: 20100809
  Receipt Date: 20100805
  Transmission Date: 20110219
  Serious: Yes (Death, Hospitalization, Other)
  Sender: FDA-Public Use
  Company Number: PHHY2010BR51679

PATIENT
  Sex: Female

DRUGS (3)
  1. DIOVAN [Suspect]
     Indication: HYPERTENSION
     Dosage: 1 TABLET A DAY
     Route: 048
  2. SUSTRATE [Concomitant]
     Dosage: 1 TABLET A DAY
     Route: 048
  3. CAPILAREMA [Concomitant]
     Indication: CARDIOVASCULAR INSUFFICIENCY
     Dosage: 1 TABLET A DAY
     Route: 048

REACTIONS (5)
  - CARDIO-RESPIRATORY ARREST [None]
  - MULTI-ORGAN FAILURE [None]
  - RENAL FAILURE [None]
  - SENILE DEMENTIA [None]
  - VOMITING [None]
